FAERS Safety Report 9329672 (Version 2)
Quarter: 2013Q3

REPORT INFORMATION
  Report Type: Spontaneous
  Country: CH (occurrence: CH)
  Receive Date: 20130604
  Receipt Date: 20130819
  Transmission Date: 20140515
  Serious: Yes (Death)
  Sender: FDA-Public Use
  Company Number: CH-B.I. PHARMACEUTICALS,INC./RIDGEFIELD-2013-AP-00442SI

PATIENT
  Age: 82 Year
  Sex: Male
  Weight: 75 kg

DRUGS (4)
  1. PRADAXA [Suspect]
     Indication: ATRIAL FIBRILLATION
     Dosage: 300 MG
     Dates: start: 20130315, end: 20130505
  2. PRADAXA [Suspect]
     Indication: ATRIAL FLUTTER
  3. CONCOR 25.5 MG [Concomitant]
     Dosage: 2.5 MG
     Route: 048
     Dates: end: 20130505
  4. LISINOPRIL [Concomitant]
     Dosage: 20 MG
     Route: 048
     Dates: end: 20130505

REACTIONS (9)
  - Cerebral infarction [Fatal]
  - Cerebral artery occlusion [Fatal]
  - Hemiplegia [Fatal]
  - Aphasia [Fatal]
  - Respiratory disorder [Fatal]
  - Dysphagia [Fatal]
  - Pneumonia aspiration [Fatal]
  - Drug ineffective [Fatal]
  - Cerebral haemorrhage [Fatal]
